FAERS Safety Report 7202513-6 (Version None)
Quarter: 2010Q4

REPORT INFORMATION
  Report Type: 
  Country: None (occurrence: None)
  Receive Date: 20101229
  Receipt Date: 20101224
  Transmission Date: 20110411
  Serious: Yes (Life-Threatening, Hospitalization, Other)
  Sender: FDA-Public Use
  Company Number: PHHY2010US87927

PATIENT
  Age: 17 Year
  Sex: Male

DRUGS (3)
  1. PIPERACILLIN AND TAZOBACTAM [Suspect]
     Indication: PSEUDOMONAS INFECTION
  2. TOBRAMYCIN [Suspect]
     Indication: PSEUDOMONAS INFECTION
     Dosage: UNK
  3. AZTREONAM [Concomitant]
     Dosage: UNK

REACTIONS (8)
  - APPENDICECTOMY [None]
  - APPENDICITIS [None]
  - HAEMATOCRIT DECREASED [None]
  - HAEMOLYTIC ANAEMIA [None]
  - HYPOTENSION [None]
  - HYPOXIA [None]
  - PALLOR [None]
  - RESUSCITATION [None]
